FAERS Safety Report 10697788 (Version 1)
Quarter: 2015Q1

REPORT INFORMATION
  Report Type: Spontaneous
  Country: US (occurrence: None)
  Receive Date: 20150107
  Receipt Date: 20150107
  Transmission Date: 20150721
  Serious: Yes (Hospitalization)
  Sender: FDA-Public Use
  Company Number: None

PATIENT
  Age: 67 Year
  Sex: Female
  Weight: 55.34 kg

DRUGS (2)
  1. ROCEPHIN [Concomitant]
     Active Substance: CEFTRIAXONE SODIUM
  2. PRACTI-PRODUCTS [Suspect]
     Active Substance: UNSPECIFIED INGREDIENT
     Indication: DEHYDRATION
     Dates: start: 20141208, end: 20141208

REACTIONS (3)
  - Wrong drug administered [None]
  - Multi-organ failure [None]
  - Bacterial sepsis [None]

NARRATIVE: CASE EVENT DATE: 20141208
